FAERS Safety Report 10926630 (Version 1)
Quarter: 2015Q1

REPORT INFORMATION
  Report Type: Spontaneous
  Country: CA (occurrence: CA)
  Receive Date: 20150318
  Receipt Date: 20150318
  Transmission Date: 20150721
  Serious: Yes (Hospitalization, Other)
  Sender: FDA-Public Use
  Company Number: PHHY2015CA024275

PATIENT
  Age: 39 Year
  Sex: Female

DRUGS (3)
  1. SANDOSTATIN LAR DEPOT [Suspect]
     Active Substance: OCTREOTIDE ACETATE
     Indication: ACROMEGALY
     Dosage: 30 MG
     Route: 065
     Dates: start: 20060307
  2. SANDOSTATIN [Suspect]
     Active Substance: OCTREOTIDE ACETATE
     Indication: ACROMEGALY
     Dosage: 50 UG, TID STARTED X 1 WEEK
     Route: 058
     Dates: start: 20060124
  3. SANDOSTATIN [Suspect]
     Active Substance: OCTREOTIDE ACETATE
     Dosage: 100 UG, TID X 60 DAYS
     Route: 058

REACTIONS (8)
  - Sinusitis [Unknown]
  - Fatigue [Unknown]
  - Ventricular extrasystoles [Unknown]
  - Gastric disorder [Unknown]
  - Pain [Unknown]
  - Adenoma benign [Unknown]
  - Cerebrospinal fluid leakage [Unknown]
  - Polyp [Unknown]

NARRATIVE: CASE EVENT DATE: 201304
